FAERS Safety Report 4332384-7 (Version None)
Quarter: 2004Q2

REPORT INFORMATION
  Report Type: 
  Country: None (occurrence: None)
  Receive Date: 20040401
  Receipt Date: 20040322
  Transmission Date: 20050107
  Serious: Yes (Death)
  Sender: FDA-Public Use
  Company Number: 2004019966

PATIENT
  Age: 91 Year
  Sex: Female

DRUGS (1)
  1. NEURONTIN [Suspect]
     Indication: EPILEPSY
     Dates: start: 20030901, end: 20031227

REACTIONS (1)
  - CEREBROVASCULAR ACCIDENT [None]
